FAERS Safety Report 5274058-4 (Version None)
Quarter: 2007Q1

REPORT INFORMATION
  Report Type: 
  Country: None (occurrence: None)
  Receive Date: 20070323
  Receipt Date: 20070319
  Transmission Date: 20070707
  Serious: Yes (Death, Disabling)
  Sender: FDA-Public Use
  Company Number: JP-BRISTOL-MYERS SQUIBB COMPANY-13622725

PATIENT
  Age: 48 Year
  Sex: Male

DRUGS (6)
  1. BARACLUDE [Suspect]
     Indication: HEPATITIS B
     Route: 048
     Dates: start: 20061205, end: 20070108
  2. MICARDIS [Suspect]
     Indication: HYPERTENSION
     Route: 048
     Dates: start: 20060905, end: 20061219
  3. PREDNISOLONE [Suspect]
     Indication: GRAFT VERSUS HOST DISEASE
     Route: 048
     Dates: start: 20060203, end: 20070108
  4. ALLOPURINOL [Suspect]
     Indication: HYPERURICAEMIA
     Route: 048
     Dates: start: 20060905, end: 20061219
  5. SLOW-K [Suspect]
     Indication: HYPOKALAEMIA
     Route: 048
     Dates: start: 20060913, end: 20061219
  6. LASIX [Suspect]
     Indication: RENAL DISORDER
     Route: 048
     Dates: start: 20060905, end: 20070108

REACTIONS (2)
  - GASTROINTESTINAL HAEMORRHAGE [None]
  - RENAL IMPAIRMENT [None]
